FAERS Safety Report 9572018 (Version 1)
Quarter: 2013Q3

REPORT INFORMATION
  Report Type: Spontaneous
  Country: GB (occurrence: None)
  Receive Date: 20130927
  Receipt Date: 20130927
  Transmission Date: 20140515
  Serious: Yes (Hospitalization, Other)
  Sender: FDA-Public Use
  Company Number: GER/UKI/13/0034647

PATIENT
  Age: 70 Year
  Sex: Female

DRUGS (7)
  1. FLUOXETINE [Suspect]
     Indication: DEPRESSION
     Dosage: 20 MG, 1 IN 1 D, PO
     Route: 048
     Dates: start: 20070813, end: 20070830
  2. DOSULEPIN [Suspect]
     Indication: DEPRESSION
     Dosage: 150 MG, 1 IN 1 D, PO
     Route: 048
  3. ALENDRONIC ACID ( ALENDRONIC ACID) [Concomitant]
  4. CLOPIDOGREL ( CLOPIDOGREL) [Concomitant]
  5. FOLIC ACID ( FOLIC ACID) [Concomitant]
  6. MORPHINE SULPHATE ( MORPHINE SULFATE) [Concomitant]
  7. PREDNISOLONE ( PREDNISOLONE) [Concomitant]

REACTIONS (3)
  - Balance disorder [None]
  - Fall [None]
  - Medication error [None]
